FAERS Safety Report 22377842 (Version 1)
Quarter: 2023Q2

REPORT INFORMATION
  Report Type: Spontaneous
  Country: US (occurrence: US)
  Receive Date: 20230529
  Receipt Date: 20230529
  Transmission Date: 20230722
  Serious: No
  Sender: FDA-Public Use
  Company Number: US-JNJFOC-20230558171

PATIENT
  Age: 45 Year
  Sex: Male
  Weight: 109 kg

DRUGS (1)
  1. SPRAVATO [Suspect]
     Active Substance: ESKETAMINE
     Indication: Depression
     Dates: start: 20230523

REACTIONS (9)
  - Pain in extremity [Unknown]
  - Discomfort [Unknown]
  - Pain [Unknown]
  - Thinking abnormal [Unknown]
  - Gait disturbance [Unknown]
  - Dizziness [Unknown]
  - Micturition urgency [Unknown]
  - Paraesthesia [Unknown]
  - Tremor [Recovered/Resolved]
